FAERS Safety Report 9062873 (Version 1)
Quarter: 2013Q1

REPORT INFORMATION
  Report Type: Other
  Country: FR (occurrence: FR)
  Receive Date: 20130213
  Receipt Date: 20130213
  Transmission Date: 20140127
  Serious: Yes (Hospitalization, Other)
  Sender: FDA-Public Use
  Company Number: FR-NICOBRDEVP-2013-01930

PATIENT
  Age: 47 None
  Sex: Male

DRUGS (7)
  1. AMLODIPINE [Suspect]
     Indication: PRODUCT USED FOR UNKNOWN INDICATION
     Dosage: 5 MG, BID
     Route: 048
     Dates: start: 20110606, end: 20110617
  2. INEXIUM [Suspect]
     Indication: PRODUCT USED FOR UNKNOWN INDICATION
     Dosage: 20 MG, DAILY
     Route: 048
     Dates: start: 20110606, end: 20110617
  3. ESIDREX [Suspect]
     Indication: PRODUCT USED FOR UNKNOWN INDICATION
     Dosage: 12.5 MG, DAILY
     Route: 048
     Dates: start: 20110606, end: 20110616
  4. LASILIX                            /00032601/ [Suspect]
     Indication: PRODUCT USED FOR UNKNOWN INDICATION
     Dosage: 40 MG, DAILY
     Route: 048
     Dates: start: 20110606, end: 20110616
  5. VISIPAQUE [Suspect]
     Indication: PRODUCT USED FOR UNKNOWN INDICATION
     Dosage: UNK
     Route: 042
     Dates: start: 20110608
  6. LANTUS [Concomitant]
     Indication: DIABETES MELLITUS
     Route: 065
  7. NOVORAPID [Concomitant]
     Indication: DIABETES MELLITUS
     Route: 065

REACTIONS (7)
  - Rash [Recovered/Resolved]
  - Pruritus [Recovered/Resolved]
  - Eosinophilia [Recovered/Resolved]
  - Rash erythematous [None]
  - Cell death [None]
  - Diabetic nephropathy [None]
  - Renal failure [None]
